FAERS Safety Report 5026614-6 (Version None)
Quarter: 2006Q2

REPORT INFORMATION
  Report Type: 
  Country: None (occurrence: None)
  Receive Date: 20060613
  Receipt Date: 20060613
  Transmission Date: 20061013
  Serious: Yes (Other)
  Sender: FDA-Public Use
  Company Number: None

PATIENT

DRUGS (1)
  1. KENALOG [Suspect]
     Indication: ENDOPHTHALMITIS
     Dosage: .1CC 1X INTRAVITRICALLY
     Dates: start: 20060526

REACTIONS (4)
  - ENDOPHTHALMITIS [None]
  - HYPOPYON [None]
  - POST PROCEDURAL COMPLICATION [None]
  - VISUAL ACUITY REDUCED [None]
